FAERS Safety Report 13672747 (Version 1)
Quarter: 2017Q2

REPORT INFORMATION
  Report Type: Spontaneous
  Country: JP (occurrence: JP)
  Receive Date: 20170621
  Receipt Date: 20170621
  Transmission Date: 20170830
  Serious: Yes (Other)
  Sender: FDA-Public Use
  Company Number: JP-CONCORDIA PHARMACEUTICALS INC.-GSH201706-003577

PATIENT
  Age: 37 Year
  Sex: Male

DRUGS (1)
  1. PLAQUENIL [Suspect]
     Active Substance: HYDROXYCHLOROQUINE SULFATE
     Indication: SYSTEMIC LUPUS ERYTHEMATOSUS
     Route: 048
     Dates: start: 201611, end: 201704

REACTIONS (1)
  - Detachment of retinal pigment epithelium [Recovered/Resolved]

NARRATIVE: CASE EVENT DATE: 201704
